FAERS Safety Report 4932075-5 (Version None)
Quarter: 2006Q1

REPORT INFORMATION
  Report Type: 
  Country: None (occurrence: None)
  Receive Date: 20060228
  Receipt Date: 20060208
  Transmission Date: 20060701
  Serious: Yes (Life-Threatening, Hospitalization, Disabling, Other)
  Sender: FDA-Public Use
  Company Number: EWC051046785

PATIENT
  Age: 78 Year
  Sex: Male
  Weight: 71 kg

DRUGS (23)
  1. PEMETREXED(PEMETREXED) VIAL [Suspect]
     Indication: MESOTHELIOMA
     Dosage: 500 MG/M2, OTHER, INTRAVENOUS
     Route: 042
     Dates: start: 20050314, end: 20050628
  2. CARBOPLATIN [Suspect]
     Indication: MESOTHELIOMA
     Dosage: 5, INTRAVENOUS
     Route: 042
     Dates: start: 20050314, end: 20050628
  3. FOLIC ACID [Concomitant]
  4. VITAMIN B12 [Concomitant]
  5. DECAPEPTYL /SCH/(TRIPTORELIN ACETATE) [Concomitant]
  6. PERSANTINE [Concomitant]
  7. CORVATON (MOLSIDOMINE) [Concomitant]
  8. ZOCOR [Concomitant]
  9. HYDERGINE [Concomitant]
  10. ALLOPURINOL [Concomitant]
  11. TENIF [Concomitant]
  12. OMEPRAZOLE [Concomitant]
  13. ACETYLSALICYLIC ACID SRT [Concomitant]
  14. CORUNO (MOLSIDOMINE) [Concomitant]
  15. LOSEC (OMEPRAZOLE SODIUM) [Concomitant]
  16. XANAX [Concomitant]
  17. TENORMIN [Concomitant]
  18. LYSOMUCIL (ACETYLCYSTEINE) [Concomitant]
  19. MEDROL [Concomitant]
  20. DEXAMETHASONE [Concomitant]
  21. ASPIRIN [Concomitant]
  22. TENORMIN [Concomitant]
  23. CORDARONE /NET/(AMIODARONE HYDROCHLORIDE) [Concomitant]

REACTIONS (11)
  - ANAEMIA [None]
  - ANGINA UNSTABLE [None]
  - AORTIC ARTERIOSCLEROSIS [None]
  - BRONCHITIS [None]
  - CARDIAC FAILURE [None]
  - CARDIAC FLUTTER [None]
  - CARDIOMYOPATHY [None]
  - CHEST PAIN [None]
  - ESCHERICHIA SEPSIS [None]
  - MITRAL VALVE INCOMPETENCE [None]
  - VENTRICULAR FIBRILLATION [None]
